FAERS Safety Report 24685817 (Version 1)
Quarter: 2024Q4

REPORT INFORMATION
  Report Type: Spontaneous
  Country: US (occurrence: None)
  Receive Date: 20241129
  Receipt Date: 20241129
  Transmission Date: 20250114
  Serious: Yes (Other)
  Sender: Public
  Company Number: None

PATIENT
  Age: 62 Year
  Sex: Female
  Weight: 87.1 kg

DRUGS (11)
  1. DUPIXENT [Suspect]
     Active Substance: DUPILUMAB
     Indication: Asthma
     Dosage: FREQUENCY : EVERY OTHER WEEK;?
     Route: 058
     Dates: start: 20200414
  2. FENOFIBRATE 145MG [Concomitant]
  3. HYDROXYCHLOROQUINE 200MG [Concomitant]
  4. LEVOTHYROXINE 75MCG [Concomitant]
  5. LYRICA 100MG [Concomitant]
  6. OMEPRAZOLE 40MG [Concomitant]
  7. PRAVASTATIN 10MG [Concomitant]
  8. ADVIAR 500/50MCG [Concomitant]
  9. LINZESS 145 MCG [Concomitant]
  10. VENTOLIN HFA [Concomitant]
  11. METFORMIN [Concomitant]

REACTIONS (1)
  - Cerebral cyst [None]

NARRATIVE: CASE EVENT DATE: 20241129
